FAERS Safety Report 15843046 (Version 1)
Quarter: 2019Q1

REPORT INFORMATION
  Report Type: Spontaneous
  Country: US (occurrence: US)
  Receive Date: 20190118
  Receipt Date: 20190118
  Transmission Date: 20190417
  Serious: No
  Sender: FDA-Public Use
  Company Number: US-INSMED, INC.-US-INS-18-00329

PATIENT
  Age: 77 Year
  Sex: Female

DRUGS (4)
  1. ANTIBIOTIC THERAPY [Concomitant]
     Indication: PRODUCT USED FOR UNKNOWN INDICATION
  2. ARIKAYCE [Suspect]
     Active Substance: AMIKACIN
     Indication: MYCOBACTERIUM AVIUM COMPLEX INFECTION
     Route: 055
     Dates: start: 2018
  3. LAMIRA NEBULIZER SYSTEM [Suspect]
     Active Substance: DEVICE
  4. ANTIFUNGAL THERAPY [Concomitant]
     Indication: PRODUCT USED FOR UNKNOWN INDICATION

REACTIONS (8)
  - Dysstasia [Unknown]
  - Poor quality sleep [Unknown]
  - Aphonia [Not Recovered/Not Resolved]
  - Oropharyngeal pain [Not Recovered/Not Resolved]
  - Haemoptysis [Not Recovered/Not Resolved]
  - Glossodynia [Not Recovered/Not Resolved]
  - Gastrooesophageal reflux disease [Unknown]
  - Nausea [Unknown]

NARRATIVE: CASE EVENT DATE: 20181205
